FAERS Safety Report 7092868-8 (Version None)
Quarter: 2010Q4

REPORT INFORMATION
  Report Type: 
  Country: None (occurrence: None)
  Receive Date: 20101110
  Receipt Date: 20101103
  Transmission Date: 20110411
  Serious: No
  Sender: FDA-Public Use
  Company Number: US-PFIZER INC-2010140404

PATIENT
  Age: 87 Year
  Sex: Female

DRUGS (2)
  1. NORVASC [Suspect]
     Dosage: 5 MG, UNK
  2. VITAMIN D [Suspect]
     Dosage: UNK

REACTIONS (1)
  - AGITATION [None]
